FAERS Safety Report 8239423-1 (Version None)
Quarter: 2012Q1

REPORT INFORMATION
  Report Type: 
  Country: None (occurrence: None)
  Receive Date: 20120328
  Receipt Date: 20120316
  Transmission Date: 20120608
  Serious: Yes (Other)
  Sender: FDA-Public Use
  Company Number: CA-JNJFOC-20120308344

PATIENT
  Sex: Male
  Weight: 68 kg

DRUGS (2)
  1. HYDROCORTISONE [Suspect]
     Indication: PRODUCT USED FOR UNKNOWN INDICATION
     Route: 065
     Dates: start: 20120223
  2. REMICADE [Suspect]
     Indication: CROHN'S DISEASE
     Dosage: ONCE EVERY 0, 2, 6 AND 8 WEEKS
     Route: 042
     Dates: start: 20120203

REACTIONS (2)
  - UNEVALUABLE EVENT [None]
  - FEELING JITTERY [None]
